FAERS Safety Report 9357288 (Version 3)
Quarter: 2014Q2

REPORT INFORMATION
  Report Type: Spontaneous
  Country: US (occurrence: US)
  Receive Date: 20130620
  Receipt Date: 20140624
  Transmission Date: 20141212
  Serious: Yes (Hospitalization)
  Sender: FDA-Public Use
  Company Number: US-BAYER-2013-073349

PATIENT
  Age: 39 Year
  Sex: Female
  Weight: 72.56 kg

DRUGS (3)
  1. MIRENA [Suspect]
     Indication: CONTRACEPTION
     Dosage: 20 MCG/24HR, CONT
     Route: 015
     Dates: start: 20120924, end: 20130206
  2. MIRENA [Suspect]
     Indication: MENORRHAGIA
  3. LIPITOR [Concomitant]

REACTIONS (5)
  - Device dislocation [Not Recovered/Not Resolved]
  - Injury [Not Recovered/Not Resolved]
  - Pain [Not Recovered/Not Resolved]
  - Medical device pain [None]
  - Medical device discomfort [Not Recovered/Not Resolved]
